FAERS Safety Report 8375611-1 (Version None)
Quarter: 2012Q2

REPORT INFORMATION
  Report Type: 
  Country: None (occurrence: None)
  Receive Date: 20120522
  Receipt Date: 20120511
  Transmission Date: 20120825
  Serious: Yes (Other)
  Sender: FDA-Public Use
  Company Number: US-BAYER-200942055NA

PATIENT
  Age: 42 Year
  Sex: Female
  Weight: 64.545 kg

DRUGS (5)
  1. LEXAPRO [Concomitant]
     Indication: PRODUCT USED FOR UNKNOWN INDICATION
     Dosage: UNKNOWN DOSAGE
  2. MIRENA [Suspect]
     Indication: CONTRACEPTION
  3. UNKNOWN PILL [Concomitant]
     Dosage: UNKNOWN PILL AND UNKNOWN DOSAGE
     Route: 048
  4. CELEXA [Concomitant]
     Dosage: 20 MG, QD
  5. MIRENA [Suspect]
     Indication: MENORRHAGIA
     Dosage: 20 MCG/24HR, CONT
     Route: 015
     Dates: start: 20090605, end: 20120208

REACTIONS (6)
  - ABDOMINAL PAIN LOWER [None]
  - MEDICAL DEVICE COMPLICATION [None]
  - UTERINE LEIOMYOMA [None]
  - MENORRHAGIA [None]
  - ANAEMIA [None]
  - DEVICE DIFFICULT TO USE [None]
